FAERS Safety Report 8195763-6 (Version None)
Quarter: 2012Q1

REPORT INFORMATION
  Report Type: 
  Country: None (occurrence: None)
  Receive Date: 20120308
  Receipt Date: 20120229
  Transmission Date: 20120608
  Serious: Yes (Hospitalization, Other)
  Sender: FDA-Public Use
  Company Number: FR-PFIZER INC-2012040657

PATIENT
  Age: 63 Year
  Sex: Male

DRUGS (14)
  1. POTASSIUM CHLORIDE [Suspect]
     Dosage: 1800 MG, DAILY
     Dates: start: 20120124
  2. POLYETHYLENE GLYCOL [Suspect]
     Dosage: 20 G, DAILY
     Route: 048
     Dates: start: 20120119
  3. FLUCONAZOLE [Suspect]
     Indication: OROPHARYNGEAL CANDIDIASIS
     Dosage: 100 MG, 1X/DAY
     Route: 048
     Dates: start: 20120119
  4. CORDARONE [Suspect]
     Dosage: 1 G, DAILY
     Route: 048
     Dates: start: 20120201, end: 20120215
  5. ACETAMINOPHEN [Suspect]
     Dosage: 4 G, DAILY
     Route: 048
     Dates: start: 20120116
  6. IPRATROPIUM [Suspect]
     Dosage: UNK
     Dates: start: 20120120
  7. LOVENOX [Suspect]
     Dosage: 4000 IU DAILY (4000 IU/0.4 ML)
     Route: 058
     Dates: start: 20120123, end: 20120215
  8. PANTOPRAZOLE SODIUM [Suspect]
     Dosage: 20 MG DAILY
     Route: 048
     Dates: start: 20120124
  9. ZOMETA [Suspect]
     Dosage: UNK
     Dates: start: 20120119
  10. MOXIFLOXACIN HCL [Suspect]
     Dosage: 400 MG, DAILY
     Route: 048
     Dates: start: 20120125, end: 20120205
  11. FUROSEMIDE [Suspect]
     Dosage: 60 MG, DAILY
     Route: 042
     Dates: start: 20120117, end: 20120218
  12. VENTOLIN [Suspect]
     Dosage: 2.5 MG/2.5 ML DAILY
     Dates: start: 20120120
  13. MORPHINE SULFATE [Suspect]
     Dosage: 60 MG, DAILY
     Dates: start: 20120119
  14. PREDNISOLONE [Suspect]
     Dosage: 40 MG, DAILY
     Route: 048
     Dates: start: 20120124

REACTIONS (2)
  - THROMBOCYTOPENIA [None]
  - PANCYTOPENIA [None]
